FAERS Safety Report 5936382-9 (Version None)
Quarter: 2008Q4

REPORT INFORMATION
  Report Type: 
  Country: None (occurrence: None)
  Receive Date: 20081029
  Receipt Date: 20081029
  Transmission Date: 20090506
  Serious: Yes (Life-Threatening)
  Sender: FDA-Public Use
  Company Number: None

PATIENT
  Age: 44 Year
  Sex: Female
  Weight: 53.978 kg

DRUGS (1)
  1. PARLODEL [Suspect]
     Indication: MENSTRUATION IRREGULAR
     Dosage: ABOUT 18 MONTHS TO 2 YRS

REACTIONS (2)
  - BREAST CANCER METASTATIC [None]
  - OVARIAN CANCER METASTATIC [None]
